FAERS Safety Report 4953584-9 (Version None)
Quarter: 2006Q1

REPORT INFORMATION
  Report Type: 
  Country: None (occurrence: None)
  Receive Date: 20060324
  Receipt Date: 20050706
  Transmission Date: 20060701
  Serious: Yes (Disabling, Other)
  Sender: FDA-Public Use
  Company Number: US-MERCK-0507USA01107

PATIENT
  Age: 49 Year
  Sex: Female
  Weight: 64 kg

DRUGS (7)
  1. VIOXX [Suspect]
     Indication: BACK PAIN
     Route: 048
     Dates: start: 20010424, end: 20020301
  2. IBUPROFEN [Concomitant]
     Route: 065
  3. HYDROCODONE BITARTRATE [Concomitant]
     Route: 065
  4. CEPHALEXIN [Concomitant]
     Route: 048
  5. FLUOXETINE HYDROCHLORIDE [Concomitant]
     Route: 048
  6. AMBIEN [Concomitant]
     Route: 048
  7. CELEXA [Concomitant]
     Route: 048

REACTIONS (16)
  - BACK PAIN [None]
  - BLINDNESS [None]
  - BULIMIA NERVOSA [None]
  - BURSITIS [None]
  - CATARACT [None]
  - EYE DISORDER [None]
  - GLAUCOMA [None]
  - HEADACHE [None]
  - LEUKOPENIA [None]
  - MICROCYTIC ANAEMIA [None]
  - MYDRIASIS [None]
  - NEOVASCULARISATION [None]
  - OPTIC NEURITIS [None]
  - PAPILLOEDEMA [None]
  - RETINAL VEIN OCCLUSION [None]
  - RETINOPATHY [None]
